FAERS Safety Report 8903365 (Version 1)
Quarter: 2012Q4

REPORT INFORMATION
  Report Type: 
  Country: US (occurrence: US)
  Receive Date: 20121113
  Receipt Date: 20121113
  Transmission Date: 20130627
  Serious: No
  Sender: FDA-Public Use
  Company Number: US-009507513-1211USA004048

PATIENT
  Sex: Male

DRUGS (6)
  1. LISINOPRIL [Suspect]
     Dosage: UNK
     Dates: start: 20120802
  2. OMEGA-3 MARINE TRIGLYCERIDES [Concomitant]
  3. MILK THISTLE [Concomitant]
  4. CYANOCOBALAMIN [Concomitant]
  5. ASCORBIC ACID [Concomitant]
  6. VITAMIN E [Concomitant]

REACTIONS (2)
  - Burning sensation [Unknown]
  - Erythema [Unknown]
